FAERS Safety Report 4268140-8 (Version None)
Quarter: 2004Q1

REPORT INFORMATION
  Report Type: 
  Country: None (occurrence: None)
  Receive Date: 20040109
  Receipt Date: 20040109
  Transmission Date: 20041129
  Serious: Yes (Other)
  Sender: FDA-Public Use
  Company Number: None

PATIENT
  Age: 26 Day
  Sex: Male
  Weight: 2.466 kg

DRUGS (1)
  1. CEFOTAXIME [Suspect]
     Dosage: 0.125 GM Q12H INTRAVENOUS
     Route: 042
     Dates: start: 20031211, end: 20031212

REACTIONS (2)
  - MEDICAL DEVICE COMPLICATION [None]
  - PALLOR [None]
